FAERS Safety Report 6552695-4 (Version None)
Quarter: 2010Q1

REPORT INFORMATION
  Report Type: 
  Country: None (occurrence: None)
  Receive Date: 20100121
  Receipt Date: 20100104
  Transmission Date: 20100710
  Serious: Yes (Death)
  Sender: FDA-Public Use
  Company Number: 2010SCPR000129

PATIENT
  Age: 53 Year
  Sex: Female

DRUGS (6)
  1. HYDRALAZINE (HYDRALAZINE HYDROCHLORIDE) UNKNOWN [Suspect]
     Indication: DRUG USE FOR UNKNOWN INDICATION
     Dosage: ORAL
     Route: 048
  2. BETA BLOCKER (BETA BLOCKER) UNKNOWN [Suspect]
     Indication: DRUG USE FOR UNKNOWN INDICATION
     Dosage: ORAL
     Route: 048
  3. CLONIDINE [Suspect]
     Indication: DRUG USE FOR UNKNOWN INDICATION
     Dosage: ORAL
     Route: 048
  4. NIFEDIPINE [Suspect]
     Indication: DRUG USE FOR UNKNOWN INDICATION
     Dosage: ORAL
     Route: 048
  5. ANGIOTENSIN CONVERTING ENZYME INHIBITOR (ANGIOTENSIN CONVERTING ENZYME [Suspect]
     Indication: DRUG USE FOR UNKNOWN INDICATION
     Dosage: ORAL
     Route: 048
  6. ETHANOL (ETHANOL) UNKNOWN [Suspect]
     Indication: DRUG USE FOR UNKNOWN INDICATION
     Dosage: ORAL
     Route: 048

REACTIONS (2)
  - COMPLETED SUICIDE [None]
  - POISONING [None]
